FAERS Safety Report 5334703-1 (Version None)
Quarter: 2007Q2

REPORT INFORMATION
  Report Type: 
  Country: None (occurrence: None)
  Receive Date: 20070521
  Receipt Date: 20070504
  Transmission Date: 20071010
  Serious: Yes (Other)
  Sender: FDA-Public Use
  Company Number: 2007RR-07469

PATIENT
  Age: 23 Year
  Sex: Male

DRUGS (10)
  1. FENOFIBRATE [Suspect]
     Dosage: 67 MG, QD
     Dates: start: 20011001
  2. PREDNISOLONE [Concomitant]
  3. CYCLOSPORINE [Concomitant]
  4. AZATHIOPRINE [Concomitant]
  5. SIROLIMUS [Concomitant]
  6. PRAVASTATIN [Concomitant]
  7. AMLODIPINE MALEATE (AMLODIPINE) [Concomitant]
  8. LABETALOL HCL [Concomitant]
  9. ALLOPURINOL [Concomitant]
  10. ALENDRONATE SODIUM [Concomitant]

REACTIONS (3)
  - GLOMERULOSCLEROSIS [None]
  - GRAFT DYSFUNCTION [None]
  - RENAL TUBULAR DISORDER [None]
